FAERS Safety Report 15567900 (Version 6)
Quarter: 2019Q2

REPORT INFORMATION
  Report Type: Report from Study
  Country: MY (occurrence: MY)
  Receive Date: 20181030
  Receipt Date: 20190522
  Transmission Date: 20190711
  Serious: Yes (Hospitalization)
  Sender: FDA-Public Use
  Company Number: MY-REGENERON PHARMACEUTICALS, INC.-2018-24011

PATIENT

DRUGS (3)
  1. IBERET FOLIC [Concomitant]
     Indication: ANAEMIA
     Dosage: 500 MG, QD
     Route: 048
     Dates: start: 20180418, end: 20180425
  2. SIDELEX [Concomitant]
     Indication: COUGH
     Dosage: 10 ML, Q8H
     Route: 048
     Dates: start: 20180430, end: 20180504
  3. CEMIPLIMAB [Suspect]
     Active Substance: CEMIPLIMAB
     Indication: NON-SMALL CELL LUNG CANCER
     Dosage: 250 MG, EVERY 3 WEEKS
     Route: 042
     Dates: start: 20180425, end: 20180425

REACTIONS (3)
  - Fatigue [Not Recovered/Not Resolved]
  - Pneumonia [Not Recovered/Not Resolved]
  - Stomatitis [Not Recovered/Not Resolved]

NARRATIVE: CASE EVENT DATE: 20180509
